FAERS Safety Report 4888532-3 (Version None)
Quarter: 2005Q4

REPORT INFORMATION
  Report Type: 
  Country: None (occurrence: None)
  Receive Date: 20051215
  Receipt Date: 20051014
  Transmission Date: 20060501
  Serious: Yes (Hospitalization)
  Sender: FDA-Public Use
  Company Number: 2005109492

PATIENT
  Age: 75 Year
  Sex: Male
  Weight: 88.4514 kg

DRUGS (1)
  1. BEXTRA [Suspect]
     Indication: ARTHRITIS
     Dosage: 10 MG (10 MG, 1 IN 1 D), ORAL
     Route: 048
     Dates: start: 20040101, end: 20050401

REACTIONS (3)
  - PAIN [None]
  - PALPITATIONS [None]
  - ULCER HAEMORRHAGE [None]
